FAERS Safety Report 11627599 (Version 1)
Quarter: 2015Q4

REPORT INFORMATION
  Report Type: Report from Study
  Country: IN (occurrence: IN)
  Receive Date: 20151014
  Receipt Date: 20151014
  Transmission Date: 20160304
  Serious: Yes (Other)
  Sender: FDA-Public Use
  Company Number: IN-ROCHE-1645526

PATIENT
  Age: 59 Year
  Sex: Male

DRUGS (7)
  1. WYSOLONE [Concomitant]
     Active Substance: PREDNISOLONE
     Route: 048
     Dates: start: 20150422, end: 20150928
  2. ARKAMINE [Concomitant]
     Route: 048
     Dates: start: 20150422, end: 20150928
  3. FLUCONAZOLE. [Concomitant]
     Active Substance: FLUCONAZOLE
     Route: 048
     Dates: start: 20150422, end: 20150928
  4. CELLCEPT [Suspect]
     Active Substance: MYCOPHENOLATE MOFETIL\MYCOPHENOLATE MOFETIL HYDROCHLORIDE
     Indication: RENAL TRANSPLANT
     Dosage: 1000MG (2 TABLETS OF 500MG) TWO TIMES A DAY
     Route: 048
     Dates: start: 20150422, end: 20150928
  5. SHELCAL [Concomitant]
     Dosage: 1 TABLET ORALLY TWO TIMES A DAY
     Route: 048
     Dates: start: 20150422, end: 20150928
  6. PROGRAF [Concomitant]
     Active Substance: TACROLIMUS\TACROLIMUS ANHYDROUS
     Dosage: 3MG IN MORNING AND 2.5MG IN EVENING
     Route: 048
     Dates: start: 20150422, end: 20150928
  7. AMARYL [Concomitant]
     Active Substance: GLIMEPIRIDE
     Route: 048
     Dates: start: 20150422, end: 20150928

REACTIONS (4)
  - Haemoglobin decreased [Unknown]
  - Vomiting [Unknown]
  - White blood cell count decreased [Unknown]
  - Blood creatinine increased [Unknown]

NARRATIVE: CASE EVENT DATE: 20150928
